FAERS Safety Report 24793690 (Version 1)
Quarter: 2024Q4

REPORT INFORMATION
  Report Type: Spontaneous
  Country: JP (occurrence: JP)
  Receive Date: 20241231
  Receipt Date: 20241231
  Transmission Date: 20250115
  Serious: Yes (Other)
  Sender: ALKEM
  Company Number: None

PATIENT
  Age: 35 Year
  Sex: Female

DRUGS (2)
  1. TACROLIMUS [Suspect]
     Active Substance: TACROLIMUS
     Indication: Nasal vestibulitis
     Dosage: UNK (OINTMENT)
     Route: 061
  2. BETAMETHASONE VALERATE\GENTAMICIN SULFATE [Suspect]
     Active Substance: BETAMETHASONE VALERATE\GENTAMICIN SULFATE
     Indication: Nasal vestibulitis
     Dosage: UNK
     Route: 061

REACTIONS (1)
  - Fungal skin infection [Recovered/Resolved]
